FAERS Safety Report 8789489 (Version 1)
Quarter: 2012Q4

REPORT INFORMATION
  Report Type: Spontaneous
  Country: US (occurrence: None)
  Receive Date: 20120910
  Receipt Date: 20120910
  Transmission Date: 20130627
  Serious: Yes (Hospitalization, Other)
  Sender: FDA-Public Use
  Company Number: None

PATIENT
  Age: 58 Year
  Sex: Female
  Weight: 97 kg

DRUGS (1)
  1. CUBICIN [Suspect]
     Indication: POSTOPERATIVE INFECTION
     Route: 042
     Dates: start: 20120731, end: 20120817

REACTIONS (3)
  - Pneumonia [None]
  - Interstitial lung disease [None]
  - Pulmonary toxicity [None]
